FAERS Safety Report 9204387 (Version 1)
Quarter: 2013Q2

REPORT INFORMATION
  Report Type: Spontaneous
  Country: CH (occurrence: CH)
  Receive Date: 20130402
  Receipt Date: 20130402
  Transmission Date: 20140414
  Serious: Yes (Life-Threatening, Hospitalization, Other)
  Sender: FDA-Public Use
  Company Number: CH-PFIZER INC-2013083426

PATIENT
  Age: 31 Year
  Sex: Male
  Weight: 67 kg

DRUGS (3)
  1. ESCITALOPRAM OXALATE [Suspect]
     Dosage: UNK
  2. ONDANSETRON HCL [Interacting]
     Indication: NAUSEA
     Dosage: UNK
  3. METHADONE [Suspect]
     Dosage: 50-60 MG PER DAY
     Route: 048

REACTIONS (9)
  - Drug interaction [Recovered/Resolved]
  - Torsade de pointes [Recovered/Resolved]
  - Long QT syndrome [Recovered/Resolved]
  - Hypokalaemia [Recovered/Resolved]
  - Hypomagnesaemia [Recovered/Resolved]
  - Cardiac arrest [Recovered/Resolved]
  - Abdominal pain [Recovered/Resolved]
  - Grand mal convulsion [Recovered/Resolved]
  - Withdrawal syndrome [Recovered/Resolved]
